FAERS Safety Report 5587709-1 (Version None)
Quarter: 2007Q4

REPORT INFORMATION
  Report Type: 
  Country: None (occurrence: None)
  Receive Date: 20071207
  Receipt Date: 20071015
  Transmission Date: 20080405
  Serious: Yes (Other)
  Sender: FDA-Public Use
  Company Number: 07-429

PATIENT
  Age: 41 Year
  Sex: Male
  Weight: 99.7913 kg

DRUGS (4)
  1. ALEVE [Suspect]
     Indication: BACK PAIN
     Dosage: 880 MG, DAILY, ORAL
     Route: 048
     Dates: start: 20071002, end: 20071006
  2. BLOOD PRESSURE MEDICATION [Concomitant]
  3. TARKA [Concomitant]
  4. HYDROCODONE BITARTRATE [Concomitant]

REACTIONS (5)
  - ABDOMINAL PAIN [None]
  - FAECES DISCOLOURED [None]
  - HAEMATEMESIS [None]
  - NAUSEA [None]
  - VOMITING [None]
